FAERS Safety Report 12531402 (Version 2)
Quarter: 2016Q3

REPORT INFORMATION
  Report Type: Spontaneous
  Country: ES (occurrence: ES)
  Receive Date: 20160706
  Receipt Date: 20160712
  Transmission Date: 20161109
  Serious: Yes (Hospitalization)
  Sender: FDA-Public Use
  Company Number: ES-UCBSA-2016024973

PATIENT
  Age: 88 Year
  Sex: Male

DRUGS (6)
  1. ARICEPT [Suspect]
     Active Substance: DONEPEZIL HYDROCHLORIDE
     Indication: DEMENTIA
     Dosage: 10 MG, ONCE DAILY (QD), 0-0-1
     Route: 048
     Dates: start: 20150226, end: 20150312
  2. RISPERDAL [Concomitant]
     Active Substance: RISPERIDONE
     Indication: AGITATION
     Dosage: 1 MG, ONCE DAILY (QD), 1 CP CENA
     Route: 048
     Dates: start: 20140915
  3. KEPPRA [Suspect]
     Active Substance: LEVETIRACETAM
     Indication: PRODUCT USED FOR UNKNOWN INDICATION
     Dosage: 125 MG, 2X/DAY (BID), 1/2-0-1/2
     Route: 048
     Dates: start: 20150209, end: 20150312
  4. LORAZEPAM. [Concomitant]
     Active Substance: LORAZEPAM
     Indication: INSOMNIA
     Dosage: 1 MG, ONCE DAILY (QD), 1 CP A LAS 23 HORAS
     Route: 048
     Dates: start: 20141224
  5. FUROSEMIDA [Suspect]
     Active Substance: FUROSEMIDE
     Indication: HYPERTENSION
     Dosage: 20 MG, ONCE DAILY (QD), 1/2-0-0
     Route: 048
     Dates: start: 20150222, end: 20150312
  6. MIRTAZAPINA [Concomitant]
     Active Substance: MIRTAZAPINE
     Indication: DEPRESSION
     Dosage: 15 MG, ONCE DAILY (QD), 1 CP CENA
     Route: 048

REACTIONS (3)
  - Inappropriate antidiuretic hormone secretion [Recovering/Resolving]
  - Off label use [Unknown]
  - Inappropriate schedule of drug administration [Unknown]

NARRATIVE: CASE EVENT DATE: 20150312
